FAERS Safety Report 8081613-5 (Version None)
Quarter: 2012Q1

REPORT INFORMATION
  Report Type: 
  Country: None (occurrence: None)
  Receive Date: 20120130
  Receipt Date: 20120126
  Transmission Date: 20120608
  Serious: Yes (Other)
  Sender: FDA-Public Use
  Company Number: CHNY2011JP000480

PATIENT
  Age: 68 Year
  Sex: Male
  Weight: 61 kg

DRUGS (7)
  1. PROPOFOL [Concomitant]
     Dosage: 100 MG, UNK
     Route: 042
  2. ROCURONIUM BROMIDE [Concomitant]
     Dosage: 50 MG, UNK
     Route: 042
  3. FENTANYL [Concomitant]
     Dosage: 100 UG, UNK
     Route: 042
  4. SENNOSIDE UNKNOWN MANUFACTURER [Suspect]
     Dosage: 12 MG, UNK
     Route: 048
  5. LORAZEPAM [Suspect]
     Dosage: 1 MG, UNK
     Route: 048
  6. SEVOFLURANE [Concomitant]
     Dosage: 1.5-2.0 %
  7. REMIFENTANIL HYDROCHLORIDE [Concomitant]
     Dosage: 0.2 UG/KG/MIN
     Route: 042

REACTIONS (3)
  - CHROMATURIA [None]
  - HAEMOLYSIS [None]
  - HAEMOGLOBINURIA [None]
